FAERS Safety Report 5931393-1 (Version None)
Quarter: 2008Q4

REPORT INFORMATION
  Report Type: 
  Country: None (occurrence: None)
  Receive Date: 20081024
  Receipt Date: 20081024
  Transmission Date: 20090506
  Serious: Yes (Other)
  Sender: FDA-Public Use
  Company Number: None

PATIENT
  Age: 3 Year
  Sex: Male
  Weight: 13.6079 kg

DRUGS (1)
  1. SINGULAIR [Suspect]
     Indication: ABNORMAL BEHAVIOUR
     Dosage: 4 MG AT BEDTIME PO
     Route: 048
     Dates: start: 20080925, end: 20081020

REACTIONS (1)
  - ABNORMAL BEHAVIOUR [None]
